FAERS Safety Report 24400102 (Version 2)
Quarter: 2024Q4

REPORT INFORMATION
  Report Type: Spontaneous
  Country: PT (occurrence: PT)
  Receive Date: 20241005
  Receipt Date: 20241125
  Transmission Date: 20250115
  Serious: Yes (Other)
  Sender: SANOFI AVENTIS
  Company Number: PT-SA-2024SA284861

PATIENT
  Age: 41 Year
  Sex: Female

DRUGS (7)
  1. RIFAMPIN [Suspect]
     Active Substance: RIFAMPIN
     Indication: Latent tuberculosis
     Dosage: UNK UNK, QD
     Route: 048
     Dates: start: 20230417
  2. PALIPERIDONE PALMITATE [Suspect]
     Active Substance: PALIPERIDONE PALMITATE
     Indication: Schizophrenia
     Dosage: 150 MG, QM
     Dates: start: 20180223
  3. CLOZAPINE [Suspect]
     Active Substance: CLOZAPINE
     Indication: Schizophrenia
     Dosage: 100 MG, QD (WITH SOME PERIODS OF INTERRUPTION)
     Route: 048
     Dates: start: 2012
  4. CLOZAPINE [Suspect]
     Active Substance: CLOZAPINE
     Dosage: 100 MG, QD
     Route: 048
     Dates: start: 2018
  5. CLOZAPINE [Suspect]
     Active Substance: CLOZAPINE
     Dosage: 50 MG, QD (GRADUAL REDUCTION)
     Dates: start: 202207, end: 202211
  6. CLOZAPINE [Suspect]
     Active Substance: CLOZAPINE
     Dosage: 75 MG, QD
     Route: 048
     Dates: start: 20230420, end: 20230511
  7. CLOZAPINE [Suspect]
     Active Substance: CLOZAPINE
     Dosage: UNK, DUE TO THERAPEUTIC FAILURE, THEY PROCEEDED TO INCREASE THE CLOZAPINE TO 25 MG AT BREAKFAST AND
     Route: 048
     Dates: start: 20230511

REACTIONS (2)
  - Schizophrenia [Recovered/Resolved]
  - Drug interaction [Recovered/Resolved]

NARRATIVE: CASE EVENT DATE: 20230417
